FAERS Safety Report 5530534-8 (Version None)
Quarter: 2007Q4

REPORT INFORMATION
  Report Type: 
  Country: None (occurrence: None)
  Receive Date: 20071130
  Receipt Date: 20071116
  Transmission Date: 20080405
  Serious: Yes (Death)
  Sender: FDA-Public Use
  Company Number: DE-PURDUE-DEU_2007_0003806

PATIENT
  Age: 70 Year
  Sex: Male

DRUGS (2)
  1. SEVREDOL 20 MG [Suspect]
     Indication: DRUG USE FOR UNKNOWN INDICATION
     Dosage: 20 MG, TID
     Route: 048
     Dates: end: 20050101
  2. KAPANOL [Concomitant]

REACTIONS (3)
  - ALCOHOL ABUSE [None]
  - CARDIAC FAILURE [None]
  - DISEASE PROGRESSION [None]
